FAERS Safety Report 9379828 (Version 1)
Quarter: 2013Q3

REPORT INFORMATION
  Report Type: Spontaneous
  Country: FR (occurrence: FR)
  Receive Date: 20130702
  Receipt Date: 20130702
  Transmission Date: 20140515
  Serious: Yes (Death)
  Sender: FDA-Public Use
  Company Number: FR-B.I. PHARMACEUTICALS,INC./RIDGEFIELD-2013-FF-01605FF

PATIENT
  Age: 94 Year
  Sex: Female

DRUGS (3)
  1. PRADAXA [Suspect]
     Indication: ARRHYTHMIA
     Dosage: 220 MG
     Route: 048
  2. PRADAXA [Suspect]
     Indication: ATRIAL FIBRILLATION
  3. KARDEGIC [Suspect]

REACTIONS (3)
  - Intestinal infarction [Fatal]
  - Genital haemorrhage [Unknown]
  - Abdominal pain [Unknown]
